FAERS Safety Report 9052286 (Version 1)
Quarter: 2013Q1

REPORT INFORMATION
  Report Type: Spontaneous
  Country: US (occurrence: US)
  Receive Date: 20130206
  Receipt Date: 20130206
  Transmission Date: 20140127
  Serious: Yes (Death)
  Sender: FDA-Public Use
  Company Number: GXBR2013US000489

PATIENT
  Age: 69 None
  Sex: Female

DRUGS (1)
  1. ENOXAPARIN SODIUM [Suspect]
     Indication: VENOUS THROMBOSIS
     Dosage: 70 MG, BID
     Route: 058

REACTIONS (1)
  - Death [Fatal]
